FAERS Safety Report 15406383 (Version 1)
Quarter: 2018Q3

REPORT INFORMATION
  Report Type: Spontaneous
  Country: TR (occurrence: TR)
  Receive Date: 20180920
  Receipt Date: 20180920
  Transmission Date: 20181010
  Serious: Yes (Other)
  Sender: FDA-Public Use
  Company Number: PHHY2018TR096796

PATIENT
  Sex: Male

DRUGS (3)
  1. VALPROATE SODIUM. [Suspect]
     Active Substance: VALPROATE SODIUM
     Indication: FOETAL EXPOSURE DURING PREGNANCY
     Route: 064
  2. FOLIC ACID. [Suspect]
     Active Substance: FOLIC ACID
     Indication: FOETAL EXPOSURE DURING PREGNANCY
     Route: 064
  3. LEVETIRACETAM. [Suspect]
     Active Substance: LEVETIRACETAM
     Indication: FOETAL EXPOSURE DURING PREGNANCY
     Dosage: MATERNAL DOSE: 1000 MG, QD
     Route: 064

REACTIONS (8)
  - Foetal exposure during pregnancy [Unknown]
  - Gastrointestinal malformation [Unknown]
  - Congenital musculoskeletal anomaly [Unknown]
  - Micrognathia [Unknown]
  - Nose deformity [Unknown]
  - Hypertelorism of orbit [Unknown]
  - Joint contracture [Unknown]
  - Congenital cardiovascular anomaly [Unknown]
